FAERS Safety Report 12316939 (Version 1)
Quarter: 2016Q2

REPORT INFORMATION
  Report Type: Spontaneous
  Country: US (occurrence: None)
  Receive Date: 20160428
  Receipt Date: 20160428
  Transmission Date: 20160815
  Serious: No
  Sender: FDA-Public Use
  Company Number: None

PATIENT
  Age: 29 Year
  Sex: Female
  Weight: 72.58 kg

DRUGS (1)
  1. MONISTAT 1 COMBINATION PACK [Suspect]
     Active Substance: MICONAZOLE NITRATE
     Indication: FUNGAL INFECTION
     Dates: start: 20160420, end: 20160423

REACTIONS (6)
  - Genital pain [None]
  - Blister [None]
  - Ulcer [None]
  - Vulvovaginal swelling [None]
  - Therapeutic response decreased [None]
  - Erythema [None]

NARRATIVE: CASE EVENT DATE: 20160421
